FAERS Safety Report 7329584-0 (Version None)
Quarter: 2011Q1

REPORT INFORMATION
  Report Type: 
  Country: None (occurrence: None)
  Receive Date: 20110303
  Receipt Date: 20110218
  Transmission Date: 20110831
  Serious: Yes (Other)
  Sender: FDA-Public Use
  Company Number: CN-ACTELION-A-CH2011-45343

PATIENT
  Age: 15 Year
  Sex: Female

DRUGS (2)
  1. TRACLEER [Suspect]
     Indication: PULMONARY ARTERIAL HYPERTENSION
     Dosage: UNK , UNK
     Route: 048
  2. SILDENAFIL [Concomitant]

REACTIONS (3)
  - GASTROINTESTINAL HAEMORRHAGE [None]
  - HAEMOPTYSIS [None]
  - INTESTINAL ULCER [None]
